FAERS Safety Report 8024143-9 (Version None)
Quarter: 2012Q1

REPORT INFORMATION
  Report Type: 
  Country: None (occurrence: None)
  Receive Date: 20120105
  Receipt Date: 20111227
  Transmission Date: 20120608
  Serious: Yes (Hospitalization)
  Sender: FDA-Public Use
  Company Number: CA-ELI_LILLY_AND_COMPANY-CA201112007689

PATIENT
  Age: 82 Year
  Sex: Female

DRUGS (9)
  1. FUROSEMIDE [Concomitant]
  2. POTASSIUM CHLORIDE [Concomitant]
  3. FORTEO [Suspect]
     Indication: OSTEOPOROSIS
     Dosage: 20 UG, QD
     Route: 058
     Dates: start: 20110217
  4. VITAMIN D [Concomitant]
     Dosage: 40 DF, UNK
  5. PANTOLOC                           /01263202/ [Concomitant]
  6. CALCIUM ACETATE [Concomitant]
  7. PLAQUENIL [Concomitant]
  8. VITAMIN B6 [Concomitant]
  9. PREDNISONE TAB [Concomitant]

REACTIONS (1)
  - OEDEMA PERIPHERAL [None]
